FAERS Safety Report 8478873-5 (Version None)
Quarter: 2012Q2

REPORT INFORMATION
  Report Type: 
  Country: None (occurrence: None)
  Receive Date: 20120629
  Receipt Date: 20120625
  Transmission Date: 20120825
  Serious: Yes (Hospitalization)
  Sender: FDA-Public Use
  Company Number: DE-ROCHE-1081426

PATIENT
  Age: 75 Year
  Sex: Female

DRUGS (3)
  1. TAXOL [Concomitant]
     Indication: OVARIAN CANCER
  2. AVASTIN [Suspect]
     Indication: OVARIAN CANCER
     Dates: start: 20120514
  3. CARBOPLATIN [Concomitant]
     Indication: OVARIAN CANCER

REACTIONS (2)
  - CONFUSIONAL STATE [None]
  - APRAXIA [None]
